FAERS Safety Report 9774541 (Version 1)
Quarter: 2013Q4

REPORT INFORMATION
  Report Type: Spontaneous
  Country: US (occurrence: US)
  Receive Date: 20131220
  Receipt Date: 20131220
  Transmission Date: 20140711
  Serious: Yes (Hospitalization)
  Sender: FDA-Public Use
  Company Number: US-BAYER-2013-153766

PATIENT
  Age: 46 Year
  Sex: Female
  Weight: 63.5 kg

DRUGS (5)
  1. YASMIN [Suspect]
  2. IMODIUM PLUS [Concomitant]
  3. PROCHLORPERAZINE [Concomitant]
  4. ALPRAZOLAM [Concomitant]
  5. CLARITIN D [Concomitant]

REACTIONS (2)
  - Deep vein thrombosis [None]
  - Jugular vein thrombosis [None]
